FAERS Safety Report 4796798-3 (Version None)
Quarter: 2005Q4

REPORT INFORMATION
  Report Type: 
  Country: None (occurrence: None)
  Receive Date: 20051011
  Receipt Date: 20051011
  Transmission Date: 20060501
  Serious: Yes (Life-Threatening, Hospitalization)
  Sender: FDA-Public Use
  Company Number: None

PATIENT
  Age: 62 Year
  Sex: Female
  Weight: 79.3795 kg

DRUGS (1)
  1. ALTACE [Suspect]
     Indication: DIABETES MELLITUS NON-INSULIN-DEPENDENT
     Dosage: 2.5 MG 1X/DAILY PO
     Route: 048
     Dates: start: 20050414, end: 20050828

REACTIONS (7)
  - ANGIONEUROTIC OEDEMA [None]
  - FACE OEDEMA [None]
  - GASTRIC HAEMORRHAGE [None]
  - LARYNGEAL OEDEMA [None]
  - OBSTRUCTIVE AIRWAYS DISORDER [None]
  - ORAL SOFT TISSUE DISORDER [None]
  - TONGUE OEDEMA [None]
